FAERS Safety Report 20177092 (Version 1)
Quarter: 2021Q4

REPORT INFORMATION
  Report Type: Spontaneous
  Country: US (occurrence: None)
  Receive Date: 20211211
  Receipt Date: 20211211
  Transmission Date: 20220303
  Serious: No
  Sender: FDA-Public Use
  Company Number: None

PATIENT
  Age: 68 Year
  Sex: Male
  Weight: 115.65 kg

DRUGS (1)
  1. REPATHA [Suspect]
     Active Substance: EVOLOCUMAB
     Indication: Blood cholesterol
     Dosage: OTHER QUANTITY : 140 INJECTION(S);?OTHER FREQUENCY : TWICE A MONTH;?
     Route: 058

REACTIONS (8)
  - Asthenia [None]
  - Back pain [None]
  - Vision blurred [None]
  - Mobility decreased [None]
  - Pruritus [None]
  - Neck pain [None]
  - Nasal congestion [None]
  - Illness [None]

NARRATIVE: CASE EVENT DATE: 20211211
